FAERS Safety Report 16952298 (Version 1)
Quarter: 2019Q4

REPORT INFORMATION
  Report Type: Spontaneous
  Country: US (occurrence: US)
  Receive Date: 20190904
  Receipt Date: 20190904
  Transmission Date: 20200122
  Serious: Yes (Hospitalization)
  Sender: FDA-Public Use
  Company Number: None

PATIENT
  Age: 52 Year
  Sex: Male

DRUGS (15)
  1. LISINOPRIL. [Concomitant]
     Active Substance: LISINOPRIL
  2. SYNTHROID [Concomitant]
     Active Substance: LEVOTHYROXINE SODIUM
  3. ENBREL [Suspect]
     Active Substance: ETANERCEPT
     Indication: RHEUMATOID ARTHRITIS
     Route: 058
     Dates: start: 20180725
  4. FOLIC ACID. [Concomitant]
     Active Substance: FOLIC ACID
  5. METFORMIN [Concomitant]
     Active Substance: METFORMIN HYDROCHLORIDE
  6. TRAMADOL. [Concomitant]
     Active Substance: TRAMADOL
  7. VITAMIN D3 [Concomitant]
     Active Substance: CHOLECALCIFEROL
  8. HYDROXYCHLOR [Concomitant]
     Active Substance: HYDROXYCHLOROQUINE
  9. OMEPRAZOLE. [Concomitant]
     Active Substance: OMEPRAZOLE
  10. BUTRANS DIS [Concomitant]
  11. ASPRIN 81 [Concomitant]
  12. IBUPROFEN. [Concomitant]
     Active Substance: IBUPROFEN
  13. LECOTHYROXIN [Concomitant]
  14. DICLOFENAC GEL [Concomitant]
     Active Substance: DICLOFENAC
  15. MELOXICAM. [Concomitant]
     Active Substance: MELOXICAM

REACTIONS (2)
  - Limb operation [None]
  - Therapy cessation [None]

NARRATIVE: CASE EVENT DATE: 20190728
